FAERS Safety Report 8758879 (Version 1)
Quarter: 2012Q4

REPORT INFORMATION
  Report Type: 
  Country: IT (occurrence: IT)
  Receive Date: 20120829
  Receipt Date: 20120829
  Transmission Date: 20130627
  Serious: Yes (Hospitalization)
  Sender: FDA-Public Use
  Company Number: PHHY2012IT072965

PATIENT
  Age: 52 Year
  Sex: Male
  Weight: 99 kg

DRUGS (1)
  1. CERTICAN [Suspect]
     Indication: RENAL TRANSPLANT
     Dosage: 2 mg, daily
     Route: 048
     Dates: start: 20100814, end: 20120814

REACTIONS (3)
  - Colitis ulcerative [Recovering/Resolving]
  - Oesophagitis [Recovering/Resolving]
  - Gastritis erosive [Recovering/Resolving]
